FAERS Safety Report 15353731 (Version 1)
Quarter: 2018Q3

REPORT INFORMATION
  Report Type: Spontaneous
  Country: US (occurrence: US)
  Receive Date: 20180830
  Receipt Date: 20180830
  Transmission Date: 20181010
  Serious: Yes (Other)
  Sender: FDA-Public Use
  Company Number: None

PATIENT
  Age: 80 Year
  Sex: Male
  Weight: 62.55 kg

DRUGS (21)
  1. NORVASC [Concomitant]
     Active Substance: AMLODIPINE BESYLATE
  2. PREDNISONE. [Concomitant]
     Active Substance: PREDNISONE
  3. LASIX [Concomitant]
     Active Substance: FUROSEMIDE
  4. PROCTOCORT [Concomitant]
     Active Substance: HYDROCORTISONE
  5. FENOFIBRATE. [Concomitant]
     Active Substance: FENOFIBRATE
  6. ATORVASTATIN [Concomitant]
     Active Substance: ATORVASTATIN
  7. DILTIAZEM. [Concomitant]
     Active Substance: DILTIAZEM
  8. PROCRIT [Concomitant]
     Active Substance: ERYTHROPOIETIN
  9. LIDODERM [Concomitant]
     Active Substance: LIDOCAINE
  10. TAB?A?VITE [Concomitant]
  11. XGEVA [Concomitant]
     Active Substance: DENOSUMAB
  12. FERROUS SULFATE. [Concomitant]
     Active Substance: FERROUS SULFATE
  13. JUVEN [Concomitant]
     Active Substance: .BETA.-HYDROXYISOVALERIC ACID\ARGININE\GLUTAMINE
  14. COLLAGENASE SANTYL [Concomitant]
     Active Substance: COLLAGENASE CLOSTRIDIUM HISTOLYTICUM
  15. BICALUTAMIDE. [Concomitant]
     Active Substance: BICALUTAMIDE
  16. ACETAMINOPHEN. [Concomitant]
     Active Substance: ACETAMINOPHEN
  17. DULCOLAX NOS [Concomitant]
     Active Substance: BISACODYL OR DOCUSATE SODIUM
  18. PRILOSEC [Concomitant]
     Active Substance: OMEPRAZOLE MAGNESIUM
  19. ZYTIGA [Suspect]
     Active Substance: ABIRATERONE ACETATE
     Indication: BONE CANCER
     Route: 048
     Dates: start: 20180724
  20. CALCIUM [Concomitant]
     Active Substance: CALCIUM
  21. PROMOD [Concomitant]

REACTIONS (1)
  - Disease progression [None]

NARRATIVE: CASE EVENT DATE: 20180829
